FAERS Safety Report 8262790 (Version 4)
Quarter: 2014Q2

REPORT INFORMATION
  Report Type: Report from Study
  Country: US (occurrence: US)
  Receive Date: 20111124
  Receipt Date: 20140422
  Transmission Date: 20141212
  Serious: Yes (Hospitalization)
  Sender: FDA-Public Use
  Company Number: US-ROCHE-GNE319201

PATIENT
  Age: 24 Year
  Sex: Female

DRUGS (3)
  1. OMALIZUMAB [Suspect]
     Indication: ASTHMA
     Dosage: UNK
     Route: 065
     Dates: start: 20090203, end: 200908
  2. XANAX [Concomitant]
     Indication: ANXIETY
     Dosage: UNK
     Route: 048
  3. NEURONTIN (UNITED STATES) [Concomitant]
     Indication: NERVE COMPRESSION
     Dosage: UNK
     Route: 048

REACTIONS (1)
  - Post procedural haemorrhage [Recovered/Resolved]
